FAERS Safety Report 24432883 (Version 4)
Quarter: 2025Q4

REPORT INFORMATION
  Report Type: Report from Study
  Country: US (occurrence: US)
  Receive Date: 20241014
  Receipt Date: 20251107
  Transmission Date: 20260118
  Serious: Yes (Death)
  Sender: MERCK SHARP & DOHME LLC
  Company Number: None

PATIENT
  Sex: Female
  Weight: 49.9 kg

DRUGS (24)
  1. WINREVAIR [Suspect]
     Active Substance: SOTATERCEPT-CSRK
     Indication: Product used for unknown indication
     Dosage: DOSE DESCRIPTION : UNK
     Route: 058
     Dates: start: 20240618
  2. WINREVAIR [Suspect]
     Active Substance: SOTATERCEPT-CSRK
     Dosage: DOSE DECREASE
     Route: 058
     Dates: start: 20250714
  3. WINREVAIR [Suspect]
     Active Substance: SOTATERCEPT-CSRK
  4. WINREVAIR [Suspect]
     Active Substance: SOTATERCEPT-CSRK
  5. WINREVAIR [Suspect]
     Active Substance: SOTATERCEPT-CSRK
     Dosage: STRENGTH; 45 MG
     Route: 065
  6. WINREVAIR [Suspect]
     Active Substance: SOTATERCEPT-CSRK
  7. WINREVAIR [Suspect]
     Active Substance: SOTATERCEPT-CSRK
  8. WINREVAIR [Suspect]
     Active Substance: SOTATERCEPT-CSRK
  9. REMODULIN [Suspect]
     Active Substance: TREPROSTINIL
     Indication: Pulmonary arterial hypertension
     Dosage: DOSE DESCRIPTION : 0.045 MICROGRAM PER KILOGRAM, CONTINUOUS?STRENGTH: 5.0 MILLIGRAM PER MILLILITRE
     Route: 058
     Dates: start: 20220711
  10. ZYRTEC [Concomitant]
     Active Substance: CETIRIZINE HYDROCHLORIDE
     Dosage: DOSE DESCRIPTION : UNK
  11. POTASSIUM CHLORIDE [Concomitant]
     Active Substance: POTASSIUM CHLORIDE
     Dosage: DOSE DESCRIPTION : UNK
  12. LEVOTHYROXINE [Concomitant]
     Active Substance: LEVOTHYROXINE
     Dosage: DOSE DESCRIPTION : UNK
  13. FISH OIL [Concomitant]
     Active Substance: FISH OIL
     Dosage: DOSE DESCRIPTION : UNK
  14. LASIX [Concomitant]
     Active Substance: FUROSEMIDE
     Dosage: DOSE DESCRIPTION : UNK
  15. SILDENAFIL CITRATE [Concomitant]
     Active Substance: SILDENAFIL CITRATE
     Dosage: DOSE DESCRIPTION : UNK
  16. VITAMIN D2 [Concomitant]
     Active Substance: ERGOCALCIFEROL
     Dosage: DOSE DESCRIPTION : UNK
  17. CALCIUM\CHOLECALCIFEROL [Concomitant]
     Active Substance: CALCIUM\CHOLECALCIFEROL
     Dosage: DOSE DESCRIPTION : UNK
  18. FAMOTIDINE [Concomitant]
     Active Substance: FAMOTIDINE
     Dosage: DOSE DESCRIPTION : UNK
  19. LETAIRIS [Concomitant]
     Active Substance: AMBRISENTAN
     Dosage: DOSE DESCRIPTION : UNK
  20. OXYGEN [Concomitant]
     Active Substance: OXYGEN
     Dosage: DOSE DESCRIPTION : UNK
  21. SPIRONOLACTONE [Concomitant]
     Active Substance: SPIRONOLACTONE
     Dosage: DOSE DESCRIPTION : UNK
  22. SUDAFED PE CONGESTION [Concomitant]
     Active Substance: PHENYLEPHRINE HYDROCHLORIDE
     Dosage: DOSE DESCRIPTION : UNK
  23. LOVASTATIN [Concomitant]
     Active Substance: LOVASTATIN
     Dosage: DOSE DESCRIPTION : UNK
  24. RESTASIS [Concomitant]
     Active Substance: CYCLOSPORINE
     Dosage: DOSE DESCRIPTION : UNK

REACTIONS (2)
  - Death [Fatal]
  - Platelet count decreased [Not Recovered/Not Resolved]

NARRATIVE: CASE EVENT DATE: 20240101
